FAERS Safety Report 4941730-2 (Version None)
Quarter: 2006Q1

REPORT INFORMATION
  Report Type: 
  Country: None (occurrence: None)
  Receive Date: 20060308
  Receipt Date: 20060223
  Transmission Date: 20060701
  Serious: Yes (Other)
  Sender: FDA-Public Use
  Company Number: 2006027531

PATIENT
  Sex: Female
  Weight: 79.3795 kg

DRUGS (15)
  1. VFEND [Suspect]
     Indication: IDIOPATHIC PULMONARY FIBROSIS
     Dosage: 400 MG (200 MG, BID INTERVAL: EVERY DAY)
     Dates: start: 20051007
  2. CELEBREX [Suspect]
     Indication: INTERVERTEBRAL DISC DEGENERATION
     Dosage: 200 MG (200 MG, DAILY INTERVAL: EVERY DAY)
     Dates: start: 20050101
  3. CELEBREX [Suspect]
     Indication: OSTEOARTHRITIS
     Dosage: 200 MG (200 MG, DAILY INTERVAL: EVERY DAY)
     Dates: start: 20050101
  4. PREDNISONE TAB [Suspect]
     Indication: PULMONARY FIBROSIS
     Dosage: 11 MG
  5. ACTIMMUNE (INTERFERON GAMMA) [Concomitant]
  6. NEURONTIN [Concomitant]
  7. PRAVACHOL [Concomitant]
  8. FOSAMAX [Concomitant]
  9. PREVACID [Concomitant]
  10. ACETYLCYSTEINE [Concomitant]
  11. IMURAN [Concomitant]
  12. VITAMIN B6 (VITAMIN B6) [Concomitant]
  13. CALCIUM CARBONATE (CALCIUM CARBONATE) [Concomitant]
  14. ALL OTHER THERAPEUTIC PRODUCTS (ALL OTHER THERAPEUTIC PRODUCTS) [Concomitant]
  15. PREDNISONE (ACETATE (PREDNISONE ACETATE) [Concomitant]

REACTIONS (4)
  - CATARACT [None]
  - GLAUCOMA [None]
  - ILL-DEFINED DISORDER [None]
  - SLEEP DISORDER [None]
